FAERS Safety Report 13504172 (Version 1)
Quarter: 2017Q2

REPORT INFORMATION
  Report Type: Spontaneous
  Country: US (occurrence: US)
  Receive Date: 20170502
  Receipt Date: 20170502
  Transmission Date: 20170830
  Serious: No
  Sender: FDA-Public Use
  Company Number: US-NEPHRON PHARMACEUTICALS CORPORATION-2020116

PATIENT
  Age: 13 Month
  Sex: Female

DRUGS (1)
  1. ALBUTEROL SULFATE INHALATION SOLUTION, 0.5% [Suspect]
     Active Substance: ALBUTEROL SULFATE
     Indication: BRONCHITIS
     Route: 055
     Dates: start: 20170418, end: 20170418

REACTIONS (3)
  - Psychomotor hyperactivity [Recovered/Resolved]
  - Drug dispensing error [Recovered/Resolved]
  - Drug ineffective [Recovered/Resolved]
